FAERS Safety Report 10743407 (Version 2)
Quarter: 2015Q1

REPORT INFORMATION
  Report Type: Report from Study
  Country: FR (occurrence: FR)
  Receive Date: 20150128
  Receipt Date: 20150202
  Transmission Date: 20150721
  Serious: Yes (Death)
  Sender: FDA-Public Use
  Company Number: FR-009507513-1501FRA009652

PATIENT
  Sex: Male
  Weight: 71 kg

DRUGS (2)
  1. MK-0000 (351) [Suspect]
     Active Substance: INVESTIGATIONAL PRODUCT
  2. TEMODAL [Suspect]
     Active Substance: TEMOZOLOMIDE
     Indication: MALIGNANT MELANOMA STAGE IV
     Dosage: 300 MG, QD FOR 5 DAYS EVERY 7 DAYS
     Route: 048
     Dates: start: 201301

REACTIONS (2)
  - Malignant melanoma [Fatal]
  - Product use issue [Unknown]

NARRATIVE: CASE EVENT DATE: 201301
